FAERS Safety Report 7972592-7 (Version None)
Quarter: 2011Q4

REPORT INFORMATION
  Report Type: 
  Country: None (occurrence: None)
  Receive Date: 20111213
  Receipt Date: 20111201
  Transmission Date: 20120403
  Serious: Yes (Hospitalization)
  Sender: FDA-Public Use
  Company Number: CA-JNJFOC-20111201359

PATIENT
  Age: 51 Year
  Sex: Male

DRUGS (2)
  1. REMICADE [Suspect]
     Indication: PSORIASIS
     Route: 042
  2. DITHRANOL [Concomitant]
     Indication: PSORIASIS
     Route: 065

REACTIONS (12)
  - HYPERLIPIDAEMIA [None]
  - SPINAL DISORDER [None]
  - PERIPHERAL ARTERIAL OCCLUSIVE DISEASE [None]
  - ARTERIOSCLEROSIS [None]
  - PANIC ATTACK [None]
  - GALLBLADDER POLYP [None]
  - CHEST PAIN [None]
  - PAIN IN EXTREMITY [None]
  - SYNCOPE [None]
  - HEPATIC ENZYME INCREASED [None]
  - BURNOUT SYNDROME [None]
  - GROIN PAIN [None]
